FAERS Safety Report 6252292-4 (Version None)
Quarter: 2009Q3

REPORT INFORMATION
  Report Type: 
  Country: None (occurrence: None)
  Receive Date: 20090701
  Receipt Date: 20070813
  Transmission Date: 20100115
  Serious: Yes (Other)
  Sender: FDA-Public Use
  Company Number: US-ASTRAZENECA-2006UW21727

PATIENT
  Age: 18019 Day
  Sex: Female
  Weight: 104.2 kg

DRUGS (20)
  1. SEROQUEL [Suspect]
     Indication: DEPRESSION
     Route: 048
     Dates: start: 20040101, end: 20061001
  2. SEROQUEL [Suspect]
     Indication: SLEEP DISORDER
     Route: 048
     Dates: start: 20040101, end: 20061001
  3. SEROQUEL [Suspect]
     Dosage: 25 MG - 50 MG
     Route: 048
     Dates: start: 20050421
  4. SEROQUEL [Suspect]
     Dosage: 25 MG - 50 MG
     Route: 048
     Dates: start: 20050421
  5. CYMBALTA [Concomitant]
     Indication: DEPRESSION
     Route: 048
     Dates: start: 20050421
  6. CELEXA [Concomitant]
     Indication: DEPRESSION
     Dosage: 20 MG - 60 MG
     Route: 048
     Dates: start: 20050617
  7. MINIPRESS [Concomitant]
     Indication: ANXIETY
     Dates: start: 20050617
  8. ATENOLOL [Concomitant]
     Route: 048
  9. RANITIDINE [Concomitant]
     Route: 048
  10. NEURONTIN [Concomitant]
     Dosage: 100 MG - 300 MG
     Route: 048
  11. NORVASC [Concomitant]
     Route: 048
  12. ZOCOR [Concomitant]
  13. AMBIEN [Concomitant]
     Route: 048
  14. LANTUS [Concomitant]
  15. UNIRETIC [Concomitant]
     Dosage: 15/25 MG PER DAY
  16. OMEPRAZOLE [Concomitant]
     Route: 048
  17. PENICILLIN VK [Concomitant]
     Route: 048
  18. IBUPROFEN [Concomitant]
     Route: 048
  19. LYRICA [Concomitant]
     Route: 048
  20. CELEBREX [Concomitant]

REACTIONS (2)
  - DIABETES MELLITUS [None]
  - DIABETIC NEUROPATHY [None]
